FAERS Safety Report 7436601-6 (Version None)
Quarter: 2011Q2

REPORT INFORMATION
  Report Type: 
  Country: None (occurrence: None)
  Receive Date: 20110418
  Receipt Date: 20110404
  Transmission Date: 20111010
  Serious: Yes (Death, Other)
  Sender: FDA-Public Use
  Company Number: 2011001641

PATIENT
  Sex: Male

DRUGS (1)
  1. TARCEVA [Suspect]
     Indication: NON-SMALL CELL LUNG CANCER
     Dosage: (150 MG,1 X PER 1 DAY), ORAL
     Route: 048
     Dates: start: 20101101

REACTIONS (2)
  - HAEMOPTYSIS [None]
  - VASCULAR RUPTURE [None]
